FAERS Safety Report 9522517 (Version 2)
Quarter: 2013Q4

REPORT INFORMATION
  Report Type: Spontaneous
  Country: US (occurrence: US)
  Receive Date: 20130913
  Receipt Date: 20131025
  Transmission Date: 20140711
  Serious: Yes (Other)
  Sender: FDA-Public Use
  Company Number: US-009507513-1309USA004779

PATIENT
  Age: 42 Year
  Sex: Female
  Weight: 73.92 kg

DRUGS (1)
  1. IMPLANON [Suspect]
     Indication: CONTRACEPTION
     Dosage: UNK
     Route: 059
     Dates: start: 20120921, end: 20130322

REACTIONS (1)
  - Vaginal haemorrhage [Recovered/Resolved]
